FAERS Safety Report 16850669 (Version 1)
Quarter: 2019Q3

REPORT INFORMATION
  Report Type: Spontaneous
  Country: US (occurrence: US)
  Receive Date: 20190925
  Receipt Date: 20190925
  Transmission Date: 20191005
  Serious: No
  Sender: FDA-Public Use
  Company Number: US-THERAPEUTICSMD-2019TMD01697

PATIENT
  Sex: Female
  Weight: 85.26 kg

DRUGS (3)
  1. UNSPECIFIED COMPOUNDED CREAM (^THE SAME AS IMVEXXY^) [Concomitant]
  2. IMVEXXY [Suspect]
     Active Substance: ESTRADIOL
     Indication: VULVOVAGINAL DRYNESS
     Dosage: UNK, 1X/DAY
     Route: 067
     Dates: start: 2019, end: 2019
  3. IMVEXXY [Suspect]
     Active Substance: ESTRADIOL
     Dosage: UNK, 2X/WEEK
     Route: 067
     Dates: start: 2019, end: 2019

REACTIONS (3)
  - Product use complaint [Recovered/Resolved]
  - Vaginal haemorrhage [Recovered/Resolved]
  - Off label use [Recovered/Resolved]

NARRATIVE: CASE EVENT DATE: 2019
